FAERS Safety Report 8996924 (Version 1)
Quarter: 2012Q4

REPORT INFORMATION
  Report Type: Spontaneous
  Country: AU (occurrence: None)
  Receive Date: 20121221
  Receipt Date: 20121221
  Transmission Date: 20130627
  Serious: Yes (Hospitalization)
  Sender: FDA-Public Use
  Company Number: 2012000275

PATIENT
  Age: 67 Year
  Sex: Male

DRUGS (3)
  1. ACEON (PERINDOPRIL ERBUMINE) TABLET [Suspect]
     Indication: DRUG USE FOR UNKNOWN INDICATION
  2. ACEON (PERINDOPRIL ERBUMINE) TABLET [Suspect]
  3. PRADAXA [Suspect]
     Indication: DRUG USE FOR UNKNOWN INDICATION
     Route: 065

REACTIONS (4)
  - Cerebral artery occlusion [None]
  - Haemorrhagic transformation stroke [None]
  - Hypertension [None]
  - Peripheral arterial occlusive disease [None]
